FAERS Safety Report 10643738 (Version 1)
Quarter: 2014Q4

REPORT INFORMATION
  Report Type: Spontaneous
  Country: AU (occurrence: AU)
  Receive Date: 20141210
  Receipt Date: 20141210
  Transmission Date: 20150529
  Serious: Yes (Other)
  Sender: FDA-Public Use
  Company Number: AU-ACTELION-A-CH2014-109107

PATIENT
  Sex: Male

DRUGS (8)
  1. VELETRI [Suspect]
     Active Substance: EPOPROSTENOL
     Indication: PRODUCT USED FOR UNKNOWN INDICATION
     Route: 042
  2. GENTAMICIN SULPHATE [Concomitant]
     Active Substance: GENTAMICIN SULFATE
  3. HEPARIN SODIUM. [Concomitant]
     Active Substance: HEPARIN SODIUM
  4. MORPHINE SULPHATE [Concomitant]
     Active Substance: MORPHINE SULFATE
  5. NYSTATIN. [Concomitant]
     Active Substance: NYSTATIN
  6. CEFOTAXIME SODIUM [Concomitant]
     Active Substance: CEFOTAXIME SODIUM
  7. FLUCLOXACILLIN SODIUM [Concomitant]
     Active Substance: FLUCLOXACILLIN
  8. FRUSEMIDE [Concomitant]
     Active Substance: FUROSEMIDE

REACTIONS (2)
  - Red man syndrome [Unknown]
  - Rash [Unknown]
